FAERS Safety Report 11867363 (Version 1)
Quarter: 2015Q4

REPORT INFORMATION
  Report Type: Spontaneous
  Country: None (occurrence: None)
  Receive Date: 20151224
  Receipt Date: 20151224
  Transmission Date: 20160305
  Serious: Yes (Other)
  Sender: FDA-Public Use
  Company Number: US-BRAINTREE LABORATORIES-150537

PATIENT
  Age: 73 Year
  Sex: Male

DRUGS (1)
  1. HALFLYTELY AND BISACODYL BOWEL PREP WITH FLAVOR PACKS [Suspect]
     Active Substance: BISACODYL\POLYETHYLENE GLYCOL 3350\POTASSIUM CHLORIDE\SODIUM BICARBONATE\SODIUM CHLORIDE
     Indication: COLONOSCOPY
     Dosage: 1.5 L
     Route: 048

REACTIONS (10)
  - Platelet count decreased [None]
  - Dyspnoea [None]
  - Chest discomfort [None]
  - Haemoglobin decreased [None]
  - Blood chloride increased [None]
  - Hyperhidrosis [None]
  - Breath sounds abnormal [None]
  - Oedema peripheral [None]
  - Brain natriuretic peptide increased [None]
  - Blood pressure increased [None]
